FAERS Safety Report 9802912 (Version 2)
Quarter: 2014Q1

REPORT INFORMATION
  Report Type: Spontaneous
  Country: FR (occurrence: FR)
  Receive Date: 20140108
  Receipt Date: 20140210
  Transmission Date: 20141002
  Serious: Yes (Other)
  Sender: FDA-Public Use
  Company Number: FR-ELI_LILLY_AND_COMPANY-FR201312009143

PATIENT
  Age: 69 Year
  Sex: Female
  Weight: 62 kg

DRUGS (4)
  1. CYMBALTA [Suspect]
     Indication: NEUROPATHY PERIPHERAL
     Dosage: UNK, QD
     Route: 048
     Dates: start: 20130904, end: 20130930
  2. KLIOGEST [Concomitant]
     Indication: MENOPAUSE
     Dosage: UNK, UNKNOWN
  3. TAREG [Concomitant]
     Indication: HYPERTENSION
     Dosage: 40 MG, EACH EVENING
     Route: 065
  4. GINKOR FORT [Concomitant]
     Indication: PRODUCT USED FOR UNKNOWN INDICATION
     Dosage: 2 DF, QD
     Route: 065

REACTIONS (19)
  - Liver disorder [Recovering/Resolving]
  - Hypotension [Recovering/Resolving]
  - Anuria [Recovering/Resolving]
  - Laryngeal pain [Recovering/Resolving]
  - Faeces discoloured [Recovering/Resolving]
  - Creatinine renal clearance decreased [Unknown]
  - Syncope [Recovering/Resolving]
  - Fall [Recovering/Resolving]
  - Sleep disorder [Recovering/Resolving]
  - Fatigue [Recovering/Resolving]
  - Nausea [Recovering/Resolving]
  - Vomiting [Recovering/Resolving]
  - Headache [Recovering/Resolving]
  - Hot flush [Recovering/Resolving]
  - Night sweats [Recovering/Resolving]
  - Decreased appetite [Recovering/Resolving]
  - Weight decreased [Recovering/Resolving]
  - Diarrhoea [Unknown]
  - Drug intolerance [Unknown]
